FAERS Safety Report 19031427 (Version 1)
Quarter: 2021Q1

REPORT INFORMATION
  Report Type: Spontaneous
  Country: US (occurrence: US)
  Receive Date: 20210318
  Receipt Date: 20210318
  Transmission Date: 20210420
  Serious: Yes (Hospitalization)
  Sender: FDA-Public Use
  Company Number: None

PATIENT
  Age: 89 Year
  Sex: Male

DRUGS (6)
  1. METOPROLOL TARTRATE 25MG TABLETS [Concomitant]
     Active Substance: METOPROLOL TARTRATE
  2. DAILY?VITE TABLETS [Concomitant]
  3. ERIVEDGE [Suspect]
     Active Substance: VISMODEGIB
     Indication: SKIN CANCER
     Route: 048
     Dates: start: 20201204, end: 20210306
  4. FINASTERIDE 5MG TABLETS [Concomitant]
     Active Substance: FINASTERIDE
  5. LISINOPRIL 2.5MG TABLETS [Concomitant]
     Active Substance: LISINOPRIL
  6. METFORMIN 1000MG TABLETS [Concomitant]
     Active Substance: METFORMIN HYDROCHLORIDE

REACTIONS (10)
  - Confusional state [None]
  - Muscle spasms [None]
  - Malnutrition [None]
  - Muscular weakness [None]
  - Feeding disorder [None]
  - Gait inability [None]
  - Dehydration [None]
  - Fall [None]
  - Dysphagia [None]
  - Electrolyte imbalance [None]

NARRATIVE: CASE EVENT DATE: 20210306
